FAERS Safety Report 25806270 (Version 1)
Quarter: 2025Q3

REPORT INFORMATION
  Report Type: Spontaneous
  Country: US (occurrence: US)
  Receive Date: 20250916
  Receipt Date: 20250916
  Transmission Date: 20251021
  Serious: Yes (Hospitalization, Other)
  Sender: NOVITIUM PHARMA
  Company Number: US-NOVITIUMPHARMA-2025USNVP02347

PATIENT
  Sex: Female
  Weight: 1.195 kg

DRUGS (2)
  1. PREDNISONE [Suspect]
     Active Substance: PREDNISONE
     Indication: Product used for unknown indication
     Route: 064
  2. Immune-globulin [Concomitant]
     Indication: Gestational alloimmune liver disease

REACTIONS (2)
  - Adrenal insufficiency [Unknown]
  - Foetal exposure during pregnancy [Unknown]
